FAERS Safety Report 5004582-0 (Version None)
Quarter: 2006Q2

REPORT INFORMATION
  Report Type: 
  Country: None (occurrence: None)
  Receive Date: 20060516
  Receipt Date: 20060516
  Transmission Date: 20061013
  Serious: Yes (Other)
  Sender: FDA-Public Use
  Company Number: None

PATIENT
  Age: 35 Year
  Sex: Female
  Weight: 49.8957 kg

DRUGS (1)
  1. MEFLOQUINE HYDROCHLORIDE [Suspect]
     Indication: MALARIA PROPHYLAXIS
     Dosage: 1 TABLET ONCE A WEEK PO
     Route: 048
     Dates: start: 20060226, end: 20060423

REACTIONS (5)
  - ABNORMAL DREAMS [None]
  - ANXIETY [None]
  - MOOD ALTERED [None]
  - NAUSEA [None]
  - PARANOIA [None]
